FAERS Safety Report 8956811 (Version 1)
Quarter: 2012Q4

REPORT INFORMATION
  Report Type: 
  Country: US (occurrence: US)
  Receive Date: 20121211
  Receipt Date: 20121211
  Transmission Date: 20130627
  Serious: Yes (Hospitalization, Other)
  Sender: FDA-Public Use
  Company Number: US-ELI_LILLY_AND_COMPANY-US201212002292

PATIENT
  Sex: Male

DRUGS (2)
  1. CIALIS [Suspect]
     Indication: ERECTILE DYSFUNCTION
     Dosage: 1 DF, unknown
     Route: 048
  2. AXIRON [Suspect]
     Indication: BLOOD TESTOSTERONE
     Dosage: 1 DF, unknown

REACTIONS (6)
  - Brain operation [Unknown]
  - Trigeminal neuralgia [Unknown]
  - Chronic paroxysmal hemicrania [Unknown]
  - Dyslexia [Unknown]
  - Blood testosterone abnormal [Unknown]
  - Sleep apnoea syndrome [Unknown]
